FAERS Safety Report 22717164 (Version 2)
Quarter: 2023Q4

REPORT INFORMATION
  Report Type: Report from Study
  Country: IN (occurrence: IN)
  Receive Date: 20230718
  Receipt Date: 20231129
  Transmission Date: 20240110
  Serious: Yes (Hospitalization, Other)
  Sender: FDA-Public Use
  Company Number: IN-002147023-NVSC2023IN157364

PATIENT
  Age: 18 Year
  Sex: Male

DRUGS (3)
  1. TACROLIMUS [Suspect]
     Active Substance: TACROLIMUS
     Indication: Renal transplant
     Dosage: UNK UNK, OTHER (TACSANT 1MG IN THE MORNING + TACSANT 1.5MG IN THE NIGHT TIME)
     Route: 048
     Dates: start: 20230523
  2. TACROLIMUS [Suspect]
     Active Substance: TACROLIMUS
     Dosage: 2 MG, QD (1 MG, BID)
     Route: 048
     Dates: start: 20230523
  3. MYFORTIC [Suspect]
     Active Substance: MYCOPHENOLATE SODIUM
     Indication: Renal transplant
     Dosage: 720 MG, QD (360 MG, BID)
     Route: 048
     Dates: start: 20230523

REACTIONS (10)
  - Hypertension [Recovered/Resolved]
  - Sepsis [Recovered/Resolved]
  - Chest pain [Recovered/Resolved]
  - Dyspnoea [Recovered/Resolved]
  - Palpitations [Recovered/Resolved]
  - Electrolyte imbalance [Recovered/Resolved]
  - Arrhythmia [Recovering/Resolving]
  - Toxicity to various agents [Recovered/Resolved]
  - Haemoglobin decreased [Unknown]
  - White blood cell count decreased [Unknown]

NARRATIVE: CASE EVENT DATE: 20230611
